FAERS Safety Report 10191465 (Version 1)
Quarter: 2014Q2

REPORT INFORMATION
  Report Type: Spontaneous
  Country: US (occurrence: US)
  Receive Date: 20140523
  Receipt Date: 20140523
  Transmission Date: 20141212
  Serious: Yes (Other)
  Sender: FDA-Public Use
  Company Number: US-ELI_LILLY_AND_COMPANY-US201405004895

PATIENT
  Sex: Female

DRUGS (4)
  1. HUMALOG LISPRO [Suspect]
     Indication: TYPE 2 DIABETES MELLITUS
     Dosage: UNK, PRN
     Route: 065
     Dates: start: 2010
  2. HUMALOG LISPRO [Suspect]
     Dosage: UNK, PRN
     Route: 065
  3. LANTUS [Concomitant]
  4. SYNTHROID [Concomitant]
     Dosage: 0.125 MG, UNKNOWN

REACTIONS (4)
  - Retinal haemorrhage [Unknown]
  - Eye swelling [Unknown]
  - Blood glucose increased [Unknown]
  - Blood glucose decreased [Unknown]
